FAERS Safety Report 15810612 (Version 1)
Quarter: 2019Q1

REPORT INFORMATION
  Report Type: Spontaneous
  Country: US (occurrence: US)
  Receive Date: 20190111
  Receipt Date: 20190111
  Transmission Date: 20190417
  Serious: Yes (Other)
  Sender: FDA-Public Use
  Company Number: US-ROCHE-2182608

PATIENT
  Sex: Male

DRUGS (5)
  1. ACETAMINOPHEN. [Concomitant]
     Active Substance: ACETAMINOPHEN
     Indication: PREMEDICATION
  2. RITUXIMAB. [Suspect]
     Active Substance: RITUXIMAB
     Indication: MUCOPOLYSACCHARIDOSIS IV
     Dosage: FOR 4 WEEKS
     Route: 042
  3. RANITIDINE. [Concomitant]
     Active Substance: RANITIDINE
     Indication: PREMEDICATION
  4. ELOSULFASE ALFA [Concomitant]
     Active Substance: ELOSULFASE ALFA
     Indication: MUCOPOLYSACCHARIDOSIS IV
     Dosage: ON DAY 0
     Route: 065
  5. METHOTREXATE. [Concomitant]
     Active Substance: METHOTREXATE
     Indication: MUCOPOLYSACCHARIDOSIS IV
     Dosage: SUBCUTANEOUS INJECTION OR INTRAVENOUS INFUSION ON DAYS 0, 1, AND 2
     Route: 065

REACTIONS (2)
  - Urticaria [Recovered/Resolved]
  - Vomiting [Recovered/Resolved]
